APPROVED DRUG PRODUCT: IBUPROFEN AND PSEUDOEPHEDRINE HYDROCHLORIDE
Active Ingredient: IBUPROFEN; PSEUDOEPHEDRINE HYDROCHLORIDE
Strength: EQ 200MG FREE ACID AND POTASSIUM SALT;30MG
Dosage Form/Route: CAPSULE;ORAL
Application: A209235 | Product #001
Applicant: AUROBINDO PHARMA LTD
Approved: Dec 1, 2017 | RLD: No | RS: No | Type: OTC